FAERS Safety Report 9548326 (Version 1)
Quarter: 2013Q3

REPORT INFORMATION
  Report Type: Spontaneous
  Country: US (occurrence: None)
  Receive Date: 20130720
  Receipt Date: 20130720
  Transmission Date: 20140515
  Serious: Yes (Hospitalization)
  Sender: FDA-Public Use
  Company Number: 2012SCPR004362

PATIENT
  Age: 3 Year
  Sex: Male

DRUGS (14)
  1. DEXAMETHASONE [Suspect]
     Indication: RETINOIC ACID SYNDROME
     Dosage: 0.25 MG/KG/DOSE)
     Route: 042
  2. RETINOIC ACID (TRETINOIN) [Suspect]
     Indication: ACUTE PROMYELOCYTIC LEUKAEMIA
     Dosage: 12.5 MG/M2/DOSE
  3. FUROSEMIDE (FUROSEMIDE) [Concomitant]
  4. CYTARABINE [Concomitant]
  5. DAUNORUBICIN [Concomitant]
  6. VANCOMYCIN [Concomitant]
  7. CEFEPIME [Concomitant]
  8. TMP-SMX [Concomitant]
  9. AMIKACIN [Concomitant]
  10. MEROPENEM [Concomitant]
  11. VORICONAZOLE [Concomitant]
  12. FLUCONAZOLE [Concomitant]
  13. PENTAMIDINE [Concomitant]
  14. ALLOPURINOL (ALLOPURINOL) UNKNOWN [Concomitant]

REACTIONS (1)
  - Hypertension [None]
